FAERS Safety Report 16069268 (Version 5)
Quarter: 2019Q3

REPORT INFORMATION
  Report Type: Report from Study
  Country: GB (occurrence: GB)
  Receive Date: 20190313
  Receipt Date: 20190821
  Transmission Date: 20191004
  Serious: Yes (Hospitalization, Other)
  Sender: FDA-Public Use
  Company Number: PHHY2018GB003228

PATIENT
  Sex: Female

DRUGS (1)
  1. SANDOSTATIN LAR DEPOT [Suspect]
     Active Substance: OCTREOTIDE ACETATE
     Indication: NEUROENDOCRINE TUMOUR
     Dosage: 20 MG, QMO (EVERY 4 WEEKS)
     Route: 030
     Dates: start: 20161101

REACTIONS (30)
  - Blood phosphorus decreased [Unknown]
  - Malignant neoplasm progression [Unknown]
  - Diarrhoea [Not Recovered/Not Resolved]
  - Abdominal discomfort [Not Recovered/Not Resolved]
  - Malaise [Not Recovered/Not Resolved]
  - Lethargy [Not Recovered/Not Resolved]
  - Back pain [Unknown]
  - Nausea [Unknown]
  - Musculoskeletal chest pain [Unknown]
  - Fatigue [Not Recovered/Not Resolved]
  - Arthralgia [Not Recovered/Not Resolved]
  - Pancreatic failure [Unknown]
  - Metastases to liver [Unknown]
  - Musculoskeletal pain [Unknown]
  - Nervousness [Unknown]
  - Flushing [Unknown]
  - Influenza like illness [Not Recovered/Not Resolved]
  - Abdominal pain [Not Recovered/Not Resolved]
  - Hepatic fibrosis [Unknown]
  - Hepatic pain [Unknown]
  - Frequent bowel movements [Unknown]
  - Cold sweat [Unknown]
  - Pain [Unknown]
  - Syncope [Unknown]
  - Influenza [Unknown]
  - Wheezing [Unknown]
  - Neuroendocrine tumour [Unknown]
  - Depressed mood [Unknown]
  - Muscle spasms [Unknown]
  - Abdominal pain upper [Unknown]
